FAERS Safety Report 16338943 (Version 1)
Quarter: 2019Q2

REPORT INFORMATION
  Report Type: Spontaneous
  Country: DE (occurrence: DE)
  Receive Date: 20190521
  Receipt Date: 20190521
  Transmission Date: 20190711
  Serious: Yes (Other)
  Sender: FDA-Public Use
  Company Number: PHHY2019DE113438

PATIENT

DRUGS (1)
  1. DEFERASIROX. [Suspect]
     Active Substance: DEFERASIROX
     Indication: THALASSAEMIA
     Route: 065

REACTIONS (5)
  - Fatigue [Recovering/Resolving]
  - Fanconi syndrome [Recovering/Resolving]
  - Hypoglycaemic seizure [Recovering/Resolving]
  - Myopathy [Recovering/Resolving]
  - Muscular weakness [Recovering/Resolving]
